FAERS Safety Report 14166724 (Version 1)
Quarter: 2017Q4

REPORT INFORMATION
  Report Type: Report from Study
  Country: CN (occurrence: CN)
  Receive Date: 20171107
  Receipt Date: 20171107
  Transmission Date: 20180321
  Serious: Yes (Hospitalization)
  Sender: FDA-Public Use
  Company Number: CN-BAYER-2017-158564

PATIENT
  Age: 60 Year
  Sex: Female

DRUGS (2)
  1. STIVARGA [Suspect]
     Active Substance: REGORAFENIB
     Indication: COLORECTAL CANCER
     Dosage: 160 MG, QD
     Route: 048
     Dates: start: 20170812, end: 201708
  2. STIVARGA [Suspect]
     Active Substance: REGORAFENIB
     Indication: COLORECTAL CANCER
     Dosage: 160 MG, QD
     Route: 048
     Dates: start: 201708, end: 2017

REACTIONS (11)
  - Surgery [Unknown]
  - Palmar-plantar erythrodysaesthesia syndrome [Recovering/Resolving]
  - Abdominal pain lower [Unknown]
  - Hypertension [Recovering/Resolving]
  - Post-traumatic pain [Unknown]
  - Oropharyngeal pain [Unknown]
  - Hyperkeratosis [Unknown]
  - Pain in extremity [Recovering/Resolving]
  - Dysphonia [Unknown]
  - Skin exfoliation [Unknown]
  - Asthenia [Unknown]

NARRATIVE: CASE EVENT DATE: 2017
